FAERS Safety Report 13727256 (Version 3)
Quarter: 2018Q2

REPORT INFORMATION
  Report Type: Report from Study
  Country: CO (occurrence: CO)
  Receive Date: 20170706
  Receipt Date: 20180530
  Transmission Date: 20180711
  Serious: Yes (Death, Hospitalization, Other)
  Sender: FDA-Public Use
  Company Number: CO-ACTELION-A-NJ2017-156376

PATIENT
  Age: 43 Year
  Sex: Female

DRUGS (1)
  1. VENTAVIS [Suspect]
     Active Substance: ILOPROST
     Indication: PULMONARY HYPERTENSION
     Dosage: 6 DF, QD
     Route: 055
     Dates: start: 20110613, end: 20170704

REACTIONS (7)
  - Varicose ulceration [Not Recovered/Not Resolved]
  - Inflammation [Not Recovered/Not Resolved]
  - Coma [Not Recovered/Not Resolved]
  - Cardiac failure [Recovering/Resolving]
  - Pain in extremity [Recovering/Resolving]
  - Pulmonary haemorrhage [Fatal]
  - Cardiac operation [Not Recovered/Not Resolved]

NARRATIVE: CASE EVENT DATE: 20170224
